FAERS Safety Report 19635549 (Version 2)
Quarter: 2021Q4

REPORT INFORMATION
  Report Type: Spontaneous
  Country: DE (occurrence: DE)
  Receive Date: 20210730
  Receipt Date: 20211007
  Transmission Date: 20220303
  Serious: Yes (Other)
  Sender: FDA-Public Use
  Company Number: NVSC2021DE171107

PATIENT
  Weight: 2.3 kg

DRUGS (2)
  1. ASPIRIN [Suspect]
     Active Substance: ASPIRIN
     Indication: Foetal exposure during pregnancy
     Dosage: MATERNAL DOSE: UNK
     Route: 064
  2. ROFERON-A [Suspect]
     Active Substance: INTERFERON ALFA-2A
     Indication: Foetal exposure during pregnancy
     Dosage: MATERNAL DOSE: 2 MIO IE/D
     Route: 064

REACTIONS (2)
  - Premature baby [Unknown]
  - Foetal exposure during pregnancy [Unknown]
